FAERS Safety Report 8273351-0 (Version None)
Quarter: 2012Q2

REPORT INFORMATION
  Report Type: 
  Country: None (occurrence: None)
  Receive Date: 20120411
  Receipt Date: 20120403
  Transmission Date: 20120825
  Serious: Yes (Hospitalization, Other)
  Sender: FDA-Public Use
  Company Number: PHHY2012CA025129

PATIENT
  Sex: Male

DRUGS (4)
  1. CLOZARIL [Suspect]
     Dosage: 350 MG, DAILY
     Route: 048
  2. EFFEXOR XR [Concomitant]
  3. CLOZARIL [Suspect]
     Indication: SCHIZOPHRENIA
     Dates: start: 20080312
  4. ATIVAN [Concomitant]
     Dosage: 0.5 MG, UNK

REACTIONS (1)
  - APPENDICITIS [None]
